FAERS Safety Report 21579822 (Version 3)
Quarter: 2022Q4

REPORT INFORMATION
  Report Type: Spontaneous
  Country: US (occurrence: US)
  Receive Date: 20221110
  Receipt Date: 20221118
  Transmission Date: 20230113
  Serious: Yes (Other)
  Sender: FDA-Public Use
  Company Number: US-PFIZER INC-PV202200099739

PATIENT
  Age: 66 Year
  Sex: Male

DRUGS (3)
  1. INLYTA [Suspect]
     Active Substance: AXITINIB
     Dosage: 5 MG
  2. INLYTA [Suspect]
     Active Substance: AXITINIB
     Dosage: 3 MG (3 X 1 MG TABLETS)
  3. KEYTRUDA [Suspect]
     Active Substance: PEMBROLIZUMAB
     Dosage: UNK

REACTIONS (4)
  - Cerebrovascular accident [Unknown]
  - Blood pressure increased [Unknown]
  - Neoplasm progression [Unknown]
  - Vision blurred [Unknown]
